FAERS Safety Report 16412215 (Version 1)
Quarter: 2019Q2

REPORT INFORMATION
  Report Type: Spontaneous
  Country: ES (occurrence: ES)
  Receive Date: 20190610
  Receipt Date: 20190610
  Transmission Date: 20190711
  Serious: Yes (Other)
  Sender: FDA-Public Use
  Company Number: ES-ALLERGAN-1923735US

PATIENT
  Sex: Female

DRUGS (1)
  1. RISEDRONATE SODIUM UNK [Suspect]
     Active Substance: RISEDRONATE SODIUM
     Indication: PRODUCT USED FOR UNKNOWN INDICATION
     Dosage: 50 MG, Q WEEK
     Route: 048
     Dates: start: 2008, end: 2011

REACTIONS (12)
  - Osteonecrosis of jaw [Recovered/Resolved]
  - Toxicity to various agents [Recovered/Resolved]
  - Hyperaesthesia [Recovered/Resolved]
  - Actinomycosis [Recovered/Resolved]
  - Soft tissue inflammation [Recovered/Resolved]
  - Gingival bleeding [Recovered/Resolved]
  - Dysaesthesia [Recovered/Resolved]
  - Ear pain [Recovered/Resolved]
  - Gingivitis [Recovered/Resolved]
  - Eye pain [Unknown]
  - Hyperpathia [Recovered/Resolved]
  - Peri-implantitis [Recovered/Resolved]

NARRATIVE: CASE EVENT DATE: 2015
